FAERS Safety Report 13765373 (Version 1)
Quarter: 2017Q3

REPORT INFORMATION
  Report Type: Spontaneous
  Country: US (occurrence: US)
  Receive Date: 20170718
  Receipt Date: 20170718
  Transmission Date: 20171127
  Serious: No
  Sender: FDA-Public Use
  Company Number: GXBR2016US003300

PATIENT
  Age: 76 Year
  Sex: Female
  Weight: 62.59 kg

DRUGS (4)
  1. SPIRONOLACTONE TABLETS USP [Suspect]
     Active Substance: SPIRONOLACTONE
     Indication: CARDIAC DISORDER
     Dosage: 20 MG, 1 TABLET IN THE MORNING AND HALF TABLET AT NIGHT
     Route: 048
     Dates: start: 20161030, end: 20161101
  2. ENALAPRIL [Concomitant]
     Active Substance: ENALAPRIL
     Dosage: UNK DF, UNK
  3. AMIODARONE [Concomitant]
     Active Substance: AMIODARONE
     Indication: ATRIAL FIBRILLATION
     Dosage: UNK DF, UNK
  4. ELIQUIS [Concomitant]
     Active Substance: APIXABAN
     Dosage: UNK DF, UNK

REACTIONS (6)
  - Peripheral swelling [Recovering/Resolving]
  - Urinary retention [Recovering/Resolving]
  - Anxiety [Recovering/Resolving]
  - Fluid retention [Recovering/Resolving]
  - Feeling abnormal [Recovering/Resolving]
  - Drug ineffective [Recovering/Resolving]

NARRATIVE: CASE EVENT DATE: 20161031
